FAERS Safety Report 7554224-5 (Version None)
Quarter: 2011Q2

REPORT INFORMATION
  Report Type: 
  Country: None (occurrence: None)
  Receive Date: 20110617
  Receipt Date: 20110614
  Transmission Date: 20111010
  Serious: Yes (Other)
  Sender: FDA-Public Use
  Company Number: US-PFIZER INC-2011131239

PATIENT

DRUGS (1)
  1. CELEBREX [Suspect]
     Indication: PAIN
     Dosage: 200 MG, 1X/DAY

REACTIONS (3)
  - HEPATITIS C [None]
  - BLOOD CREATINE PHOSPHOKINASE INCREASED [None]
  - INSOMNIA [None]
